FAERS Safety Report 4321644-1 (Version None)
Quarter: 2004Q1

REPORT INFORMATION
  Report Type: 
  Country: None (occurrence: None)
  Receive Date: 20040322
  Receipt Date: 20030912
  Transmission Date: 20041129
  Serious: No
  Sender: FDA-Public Use
  Company Number: US-BRISTOL-MYERS SQUIBB COMPANY-12383741

PATIENT
  Age: 30 Year
  Sex: Female

DRUGS (2)
  1. MONISTAT [Suspect]
     Indication: VAGINAL MYCOSIS
     Route: 067
     Dates: start: 20030907, end: 20030907
  2. PROZAC [Concomitant]

REACTIONS (3)
  - OEDEMA MOUTH [None]
  - SWELLING FACE [None]
  - URTICARIA GENERALISED [None]
